FAERS Safety Report 21572105 (Version 1)
Quarter: 2022Q4

REPORT INFORMATION
  Report Type: Report from Study
  Country: CA (occurrence: CA)
  Receive Date: 20221109
  Receipt Date: 20221109
  Transmission Date: 20230113
  Serious: Yes (Hospitalization, Other)
  Sender: FDA-Public Use
  Company Number: CA-CELLTRION INC.-2022CA018678

PATIENT

DRUGS (12)
  1. TRUXIMA [Suspect]
     Active Substance: RITUXIMAB-ABBS
     Indication: Dermatomyositis
     Dosage: 1 G AT WEEK 0 AND 2
     Route: 042
     Dates: start: 20220506
  2. TRUXIMA [Suspect]
     Active Substance: RITUXIMAB-ABBS
     Dosage: 1 G AT WEEK 0 AND 2
     Route: 042
     Dates: start: 20220608
  3. PREDNISONE [Suspect]
     Active Substance: PREDNISONE
     Indication: Product used for unknown indication
     Dosage: 3 TABLETS (15 MG) BY MOUTH 1 (ONE) TIME EACH DAY.
     Route: 048
  4. PREDNISONE [Suspect]
     Active Substance: PREDNISONE
     Dosage: 12.5 MG BY MOUTH 1 (ONE) TIME EACH DAY.; CURRENTLY TAKING 12.5 MG ALTERNATING WITH 10 MG EVERY OTHER
     Route: 048
  5. PREDNISONE [Suspect]
     Active Substance: PREDNISONE
     Dosage: 10 MG AND 12.5 MG, DISP: 30 TABLET, RFL: 1; CURRENTLY TAKING 12.5 MG ALTERNATING WITH 10 MG EVERY OT
  6. PREDNISONE [Suspect]
     Active Substance: PREDNISONE
     Dosage: 20 MG, DAILY
     Route: 048
  7. NORVASC [Concomitant]
     Active Substance: AMLODIPINE BESYLATE
     Dosage: 10 MG, 1 (ONE) TIME EACH DAY
     Route: 048
  8. CALCIUM [Concomitant]
     Active Substance: CALCIUM
     Dosage: 1000 MG, 2 (TIMES) A DAY
     Route: 048
  9. CHOLECALCIFEROL [Concomitant]
     Active Substance: CHOLECALCIFEROL
     Dosage: TAKE 4 TABLETS BY MOUTH 1 (ONE) TIME EACH DAY
     Route: 048
  10. DILAUDID [Concomitant]
     Active Substance: HYDROMORPHONE HYDROCHLORIDE
     Indication: Pain
     Dosage: 2 MG, EVERY 4 (FOUR) HOURS IF NEEDED FOR MODERATE PAIN
     Route: 048
  11. HYDROMORPHONE [Concomitant]
     Active Substance: HYDROMORPHONE
     Dosage: 3 MG, EVERY 12 (TWELVE) HOURS
     Route: 048
  12. PANTOPRAZOLE SODIUM [Concomitant]
     Active Substance: PANTOPRAZOLE SODIUM
     Dosage: 40 MG, 1 (ONE) TIME EACH DAY
     Route: 048

REACTIONS (12)
  - Dermatomyositis [Recovering/Resolving]
  - Colitis ischaemic [Unknown]
  - Large intestine infection [Unknown]
  - Condition aggravated [Recovering/Resolving]
  - Musculoskeletal stiffness [Recovering/Resolving]
  - Gingival pain [Not Recovered/Not Resolved]
  - Skin ulcer [Unknown]
  - Myalgia [Recovering/Resolving]
  - Rash [Recovering/Resolving]
  - Drug effective for unapproved indication [Unknown]
  - Off label use [Unknown]
  - Insurance issue [Unknown]
